FAERS Safety Report 15562262 (Version 1)
Quarter: 2018Q4

REPORT INFORMATION
  Report Type: Spontaneous
  Country: US (occurrence: US)
  Receive Date: 20181029
  Receipt Date: 20181029
  Transmission Date: 20190205
  Serious: Yes (Hospitalization, Other)
  Sender: FDA-Public Use
  Company Number: US-IROKO PHARMACEUTICALS LLC-US-I09001-18-00111

PATIENT
  Sex: Female
  Weight: 48.4 kg

DRUGS (3)
  1. INDOCIN [Suspect]
     Active Substance: INDOMETHACIN
     Indication: OSTEOMYELITIS
     Route: 065
  2. LEFLUNOMIDE. [Concomitant]
     Active Substance: LEFLUNOMIDE
     Indication: PRODUCT USED FOR UNKNOWN INDICATION
     Route: 065
  3. ENBREL [Suspect]
     Active Substance: ETANERCEPT
     Indication: OSTEOMYELITIS
     Route: 058
     Dates: start: 20170120, end: 201809

REACTIONS (7)
  - Suicidal ideation [Not Recovered/Not Resolved]
  - Hallucination, auditory [Unknown]
  - Depression [Unknown]
  - Personality disorder [Unknown]
  - Mental disorder [Unknown]
  - Affective disorder [Unknown]
  - Off label use [Unknown]

NARRATIVE: CASE EVENT DATE: 2018
